FAERS Safety Report 25592565 (Version 1)
Quarter: 2025Q3

REPORT INFORMATION
  Report Type: Spontaneous
  Country: GB (occurrence: GB)
  Receive Date: 20250722
  Receipt Date: 20250722
  Transmission Date: 20251020
  Serious: Yes (Hospitalization, Other)
  Sender: ELI LILLY AND COMPANY
  Company Number: None

PATIENT
  Sex: Female

DRUGS (1)
  1. MOUNJARO [Suspect]
     Active Substance: TIRZEPATIDE
     Indication: Product used for unknown indication
     Route: 065

REACTIONS (5)
  - Gastroenteritis [Unknown]
  - Fatigue [Unknown]
  - Vomiting [Unknown]
  - Abdominal distension [Unknown]
  - Renal pain [Unknown]

NARRATIVE: CASE EVENT DATE: 20250707
